FAERS Safety Report 4976521-X (Version None)
Quarter: 2006Q2

REPORT INFORMATION
  Report Type: 
  Country: None (occurrence: None)
  Receive Date: 20060412
  Receipt Date: 20060403
  Transmission Date: 20061013
  Serious: Yes (Hospitalization)
  Sender: FDA-Public Use
  Company Number: 2006BI004977

PATIENT
  Age: 52 Year
  Sex: Female
  Weight: 70.7611 kg

DRUGS (2)
  1. AVONEX [Suspect]
     Indication: MULTIPLE SCLEROSIS
     Dosage: 30 UG;QW;IM
     Route: 030
  2. AVONEX [Suspect]
     Indication: MULTIPLE SCLEROSIS
     Dosage: 30 UG;QW;IM
     Route: 030

REACTIONS (11)
  - CLAVICLE FRACTURE [None]
  - CONCUSSION [None]
  - DEPRESSION [None]
  - FALL [None]
  - FATIGUE [None]
  - INSOMNIA [None]
  - JOINT INJURY [None]
  - MIGRAINE [None]
  - PROCEDURAL PAIN [None]
  - ROTATOR CUFF SYNDROME [None]
  - URINARY INCONTINENCE [None]
